FAERS Safety Report 9499932 (Version 2)
Quarter: 2013Q3

REPORT INFORMATION
  Report Type: Spontaneous
  Country: US (occurrence: US)
  Receive Date: 20130905
  Receipt Date: 20130905
  Transmission Date: 20140515
  Serious: No
  Sender: FDA-Public Use
  Company Number: US-PFIZER INC-2013232738

PATIENT
  Age: 51 Year
  Sex: Male

DRUGS (2)
  1. XALKORI [Suspect]
     Indication: LUNG NEOPLASM MALIGNANT
     Dosage: 250 MG, 2X/DAY
     Route: 048
     Dates: start: 20130302, end: 20130808
  2. XALKORI [Suspect]
     Dosage: 250 MG, 2X/DAY
     Dates: start: 20130314

REACTIONS (2)
  - Disease progression [Not Recovered/Not Resolved]
  - Lung neoplasm malignant [Not Recovered/Not Resolved]
